FAERS Safety Report 9605560 (Version 2)
Quarter: 2014Q2

REPORT INFORMATION
  Report Type: Spontaneous
  Country: US (occurrence: US)
  Receive Date: 20131008
  Receipt Date: 20140519
  Transmission Date: 20141212
  Serious: Yes (Hospitalization)
  Sender: FDA-Public Use
  Company Number: US-PFIZER INC-2013286649

PATIENT
  Age: 78 Year
  Sex: Female
  Weight: 68.03 kg

DRUGS (6)
  1. LYRICA [Suspect]
     Indication: DIABETIC NEUROPATHY
     Dosage: 75 MG, 2X/DAY
     Route: 048
     Dates: end: 201305
  2. LYRICA [Suspect]
     Indication: NEURALGIA
     Dosage: 75 MG, 2X/DAY
     Route: 048
     Dates: start: 20131003
  3. LEVOTHYROXINE [Concomitant]
     Indication: THYROID DISORDER
     Dosage: 100 UG, 1X/DAY
  4. HYDROCHLOROTHIAZIDE [Concomitant]
     Indication: HYPERTENSION
     Dosage: 12.5 MG, 1X/DAY
  5. LOSARTAN [Concomitant]
     Indication: HYPERTENSION
     Dosage: 100 MG, 1X/DAY
  6. VITAMIN B12 [Concomitant]
     Dosage: UNK

REACTIONS (11)
  - Malaise [Unknown]
  - Weight increased [Unknown]
  - Nausea [Unknown]
  - Abdominal discomfort [Unknown]
  - Dehydration [Unknown]
  - Weight decreased [Unknown]
  - Drug ineffective [Unknown]
  - Feeling abnormal [Recovered/Resolved]
  - Neuropathy peripheral [Unknown]
  - Abdominal discomfort [Unknown]
  - Weight loss poor [Unknown]
